FAERS Safety Report 6303628-7 (Version None)
Quarter: 2009Q3

REPORT INFORMATION
  Report Type: 
  Country: None (occurrence: None)
  Receive Date: 20090807
  Receipt Date: 20090807
  Transmission Date: 20100115
  Serious: Yes (Hospitalization, Other)
  Sender: FDA-Public Use
  Company Number: None

PATIENT
  Age: 41 Year
  Sex: Female
  Weight: 81.6475 kg

DRUGS (3)
  1. TRAZODONE HCL [Suspect]
     Indication: SLEEP DISORDER
     Dosage: 50 MG 1 A DAY
     Dates: start: 20090317, end: 20090417
  2. KLONOPIN [Concomitant]
  3. CELEXA [Concomitant]

REACTIONS (7)
  - FACIAL PALSY [None]
  - GAIT DISTURBANCE [None]
  - HYPOAESTHESIA FACIAL [None]
  - MUSCULAR WEAKNESS [None]
  - PARAESTHESIA [None]
  - PRURITUS [None]
  - SPEECH DISORDER [None]
